FAERS Safety Report 10918338 (Version 1)
Quarter: 2015Q1

REPORT INFORMATION
  Report Type: Spontaneous
  Country: US (occurrence: US)
  Receive Date: 20150316
  Receipt Date: 20150316
  Transmission Date: 20150721
  Serious: No
  Sender: FDA-Public Use
  Company Number: US-GALDERMA-US14000762

PATIENT
  Age: 54 Year
  Sex: Male

DRUGS (4)
  1. VASELINE PURE [Concomitant]
     Active Substance: PETROLATUM
     Indication: DRY SKIN PROPHYLAXIS
     Route: 061
     Dates: start: 2006
  2. TRI-LUMA [Suspect]
     Active Substance: FLUOCINOLONE ACETONIDE\HYDROQUINONE\TRETINOIN
     Indication: LENTIGO
     Route: 061
     Dates: start: 20140210, end: 20140224
  3. STELARA [Concomitant]
     Active Substance: USTEKINUMAB
     Indication: PSORIASIS
     Route: 023
     Dates: start: 201305
  4. IMITREX [Concomitant]
     Active Substance: SUMATRIPTAN\SUMATRIPTAN SUCCINATE
     Indication: MIGRAINE
     Route: 048
     Dates: start: 2007

REACTIONS (2)
  - Rash [Not Recovered/Not Resolved]
  - Erythema [Not Recovered/Not Resolved]

NARRATIVE: CASE EVENT DATE: 20140224
